FAERS Safety Report 21294482 (Version 3)
Quarter: 2024Q3

REPORT INFORMATION
  Report Type: Spontaneous
  Country: FR (occurrence: FR)
  Receive Date: 20220905
  Receipt Date: 20240815
  Transmission Date: 20241017
  Serious: Yes (Hospitalization, Other)
  Sender: MERCK
  Company Number: FR-009507513-2208FRA004501

PATIENT
  Age: 74 Year
  Sex: Female

DRUGS (1)
  1. PEMBROLIZUMAB [Suspect]
     Active Substance: PEMBROLIZUMAB
     Indication: Non-small cell lung cancer stage IV
     Dosage: UNK, Q3W
     Dates: start: 20180905, end: 20180925

REACTIONS (5)
  - Encephalitis autoimmune [Unknown]
  - Peripheral sensory neuropathy [Unknown]
  - Paraneoplastic neurological syndrome [Unknown]
  - Metastases to meninges [Unknown]
  - Meningitis [Unknown]

NARRATIVE: CASE EVENT DATE: 20180915
